FAERS Safety Report 8062192-5 (Version None)
Quarter: 2012Q1

REPORT INFORMATION
  Report Type: 
  Country: None (occurrence: None)
  Receive Date: 20120123
  Receipt Date: 20120112
  Transmission Date: 20120608
  Serious: Yes (Other)
  Sender: FDA-Public Use
  Company Number: US-BRISTOL-MYERS SQUIBB COMPANY-16348104

PATIENT
  Age: 64 Year
  Sex: Female

DRUGS (6)
  1. ONGLYZA [Suspect]
  2. HUMULIN 70/30 [Concomitant]
  3. RAMIPRIL [Concomitant]
  4. CRESTOR [Concomitant]
  5. NOVOLOG [Concomitant]
  6. CALCIUM [Concomitant]

REACTIONS (3)
  - EYE HAEMORRHAGE [None]
  - VOMITING [None]
  - BLOOD GLUCOSE INCREASED [None]
